FAERS Safety Report 4366831-1 (Version None)
Quarter: 2004Q2

REPORT INFORMATION
  Report Type: 
  Country: None (occurrence: None)
  Receive Date: 20040528
  Receipt Date: 20030514
  Transmission Date: 20050107
  Serious: No
  Sender: FDA-Public Use
  Company Number: US-GLAXOSMITHKLINE-A0408362A

PATIENT
  Sex: Female

DRUGS (1)
  1. BACTROBAN [Suspect]
     Route: 061
     Dates: start: 20030514

REACTIONS (2)
  - WOUND COMPLICATION [None]
  - WOUND SECRETION [None]
